FAERS Safety Report 7664825 (Version 7)
Quarter: 2014Q4

REPORT INFORMATION
  Report Type: Report from Study
  Country: US (occurrence: US)
  Receive Date: 20100817
  Receipt Date: 20141120
  Transmission Date: 20150529
  Serious: Yes (Hospitalization)
  Sender: FDA-Public Use
  Company Number: US-ACTELION-A-NJ2010-38641

PATIENT
  Age: 66 Year
  Sex: Female

DRUGS (2)
  1. TRACLEER [Suspect]
     Active Substance: BOSENTAN\BOSENTAN MONOHYDRATE
     Indication: PULMONARY ARTERIAL HYPERTENSION
     Dosage: UNK
     Route: 048
     Dates: start: 20100108
  2. COUMADIN [Concomitant]
     Active Substance: WARFARIN SODIUM

REACTIONS (8)
  - Dyspnoea [Unknown]
  - Drug dose omission [Unknown]
  - Hypertension [Recovered/Resolved with Sequelae]
  - Pleural effusion [Unknown]
  - Leg amputation [Recovered/Resolved with Sequelae]
  - Cardiac failure congestive [Unknown]
  - Infection [Recovered/Resolved with Sequelae]
  - Cardiac disorder [Unknown]

NARRATIVE: CASE EVENT DATE: 20100718
